FAERS Safety Report 24811377 (Version 1)
Quarter: 2025Q1

REPORT INFORMATION
  Report Type: Spontaneous
  Country: US (occurrence: US)
  Receive Date: 20250106
  Receipt Date: 20250106
  Transmission Date: 20250408
  Serious: Yes (Other)
  Sender: CIPLA
  Company Number: US-CIPLA LTD.-2024US15679

PATIENT

DRUGS (1)
  1. SEVELAMER [Suspect]
     Active Substance: SEVELAMER
     Indication: End stage renal disease
     Route: 065

REACTIONS (3)
  - Oesophagitis ulcerative [Unknown]
  - Melaena [Unknown]
  - Crystal deposit intestine [Unknown]
